FAERS Safety Report 6347177-9 (Version None)
Quarter: 2009Q3

REPORT INFORMATION
  Report Type: 
  Country: None (occurrence: None)
  Receive Date: 20090910
  Receipt Date: 20090902
  Transmission Date: 20100115
  Serious: Yes (Hospitalization, Other)
  Sender: FDA-Public Use
  Company Number: PHEH2007US11514

PATIENT
  Sex: Female

DRUGS (3)
  1. AREDIA [Suspect]
     Dosage: UNK
     Dates: start: 20010101
  2. ZOMETA [Suspect]
     Dosage: UNK
     Dates: start: 20020101
  3. THALIDOMIDE [Suspect]
     Indication: MULTIPLE MYELOMA
     Dosage: 400MG

REACTIONS (19)
  - ANHEDONIA [None]
  - ANXIETY [None]
  - ASTHENIA [None]
  - BACK PAIN [None]
  - BONE FISTULA [None]
  - CHEST PAIN [None]
  - DYSPNOEA [None]
  - FATIGUE [None]
  - HERPES ZOSTER [None]
  - HYPOTHYROIDISM [None]
  - INTERVERTEBRAL DISC PROTRUSION [None]
  - MULTIPLE INJURIES [None]
  - NEUROPATHY PERIPHERAL [None]
  - OESTROGEN DEFICIENCY [None]
  - OSTEOARTHRITIS [None]
  - OSTEOMYELITIS [None]
  - OSTEONECROSIS [None]
  - PAIN [None]
  - RETINAL DETACHMENT [None]
